FAERS Safety Report 9135820 (Version 1)
Quarter: 2013Q1

REPORT INFORMATION
  Report Type: Report from Study
  Country: US (occurrence: US)
  Receive Date: 20130304
  Receipt Date: 20130304
  Transmission Date: 20140127
  Serious: No
  Sender: FDA-Public Use
  Company Number: US-ABBOTT-12P-163-0919039-00

PATIENT
  Sex: Male
  Weight: 74.46 kg

DRUGS (8)
  1. ANDROGEL 1% [Suspect]
     Indication: BLOOD TESTOSTERONE DECREASED
     Route: 061
     Dates: start: 2009, end: 2009
  2. ANDROGEL 1% [Suspect]
     Route: 061
     Dates: start: 2009, end: 201201
  3. ANDROGEL 1% [Suspect]
     Dosage: HALF OF A 2.5 GRAM PACKET
     Route: 061
     Dates: start: 201202, end: 201202
  4. NORCO [Concomitant]
     Indication: ARTHRITIS
  5. LISINOPRIL [Concomitant]
     Indication: HYPERTENSION
     Dates: start: 201201
  6. ACYCLOVIR [Concomitant]
     Indication: HERPES ZOSTER
     Dates: start: 2001
  7. KLORCOM [Concomitant]
     Indication: SUPPLEMENTATION THERAPY
  8. SYNTHROID [Concomitant]
     Indication: THYROIDECTOMY

REACTIONS (5)
  - Ventricular extrasystoles [Recovered/Resolved]
  - Dizziness [Recovered/Resolved]
  - Dizziness [Recovered/Resolved]
  - Feeling abnormal [Recovered/Resolved]
  - HIV infection [Not Recovered/Not Resolved]
